FAERS Safety Report 10053336 (Version 1)
Quarter: 2014Q2

REPORT INFORMATION
  Report Type: Spontaneous
  Country: US (occurrence: US)
  Receive Date: 20140402
  Receipt Date: 20140402
  Transmission Date: 20141212
  Serious: No
  Sender: FDA-Public Use
  Company Number: US-MALLINCKRODT-T201305218

PATIENT
  Age: 26 Year
  Sex: Female

DRUGS (3)
  1. OPTIRAY [Suspect]
     Indication: COMPUTERISED TOMOGRAM HEAD
     Dosage: 110 ML, SINGLE
     Route: 042
     Dates: start: 20131226, end: 20131226
  2. PREDNISONE [Concomitant]
     Indication: PREMEDICATION
     Route: 065
  3. BENADRYL                           /00000402/ [Concomitant]
     Indication: PREMEDICATION
     Route: 065

REACTIONS (2)
  - Blister [Recovering/Resolving]
  - Urticaria [Recovering/Resolving]
